FAERS Safety Report 15154021 (Version 1)
Quarter: 2018Q3

REPORT INFORMATION
  Report Type: Spontaneous
  Country: AU (occurrence: AU)
  Receive Date: 20180717
  Receipt Date: 20180717
  Transmission Date: 20181010
  Serious: Yes (Other)
  Sender: FDA-Public Use
  Company Number: AU-PFIZER INC-2018281991

PATIENT
  Sex: Female

DRUGS (3)
  1. SALAZOPYRIN EN [Suspect]
     Active Substance: SULFASALAZINE
     Indication: CROHN^S DISEASE
  2. SALAZOPYRIN EN [Suspect]
     Active Substance: SULFASALAZINE
     Indication: COELIAC DISEASE
  3. SALAZOPYRIN EN [Suspect]
     Active Substance: SULFASALAZINE
     Indication: COLITIS ULCERATIVE

REACTIONS (1)
  - Angina unstable [Unknown]
